FAERS Safety Report 8969104 (Version 1)
Quarter: 2012Q4

REPORT INFORMATION
  Report Type: 
  Country: JP (occurrence: JP)
  Receive Date: 20121218
  Receipt Date: 20121218
  Transmission Date: 20130627
  Serious: Yes (Hospitalization)
  Sender: FDA-Public Use
  Company Number: JP-009507513-1212JPN005410

PATIENT
  Age: 70 Year
  Sex: Male
  Weight: 59 kg

DRUGS (7)
  1. PEGINTRON [Suspect]
     Indication: CHRONIC HEPATITIS C
     Dosage: 1.36 Microgram per kilogram, qw
     Route: 058
     Dates: start: 20120214
  2. REBETOL [Suspect]
     Indication: CHRONIC HEPATITIS C
     Dosage: 200 mg, qd
     Route: 048
     Dates: start: 20120214, end: 20120419
  3. REBETOL [Suspect]
     Dosage: 100 mg, qd
     Route: 048
     Dates: start: 20120503
  4. TELAVIC [Suspect]
     Indication: CHRONIC HEPATITIS C
     Dosage: 1500 mg, qd
     Route: 048
     Dates: start: 20120214, end: 20120419
  5. TELAVIC [Suspect]
     Dosage: 1000 mg, qd
     Route: 048
     Dates: start: 20120503
  6. TELAVIC [Suspect]
     Dosage: 500 mg, qd
     Route: 048
     Dates: end: 20120514
  7. GASTER [Concomitant]
     Indication: GASTRIC ULCER
     Dosage: 20 mg, qd
     Route: 048

REACTIONS (5)
  - Anaemia [Not Recovered/Not Resolved]
  - Neutrophil count decreased [Recovered/Resolved]
  - Decreased appetite [Recovered/Resolved]
  - Diarrhoea [Recovered/Resolved]
  - Malaise [Recovered/Resolved]
